FAERS Safety Report 5472216-7 (Version None)
Quarter: 2007Q3

REPORT INFORMATION
  Report Type: 
  Country: None (occurrence: None)
  Receive Date: 20070926
  Receipt Date: 20070910
  Transmission Date: 20080115
  Serious: Yes (Death, Hospitalization, Other)
  Sender: FDA-Public Use
  Company Number: 2007US001926

PATIENT
  Age: 46 Year
  Sex: Female

DRUGS (25)
  1. PROGRAF [Suspect]
     Indication: OFF LABEL USE
     Dosage: 0.5 MG, BID; ORAL
     Route: 048
     Dates: start: 20060831, end: 20070501
  2. CELLCEPT [Concomitant]
  3. DACLIZUMAB (DACLIZUMAB) [Concomitant]
  4. ACYCLOVIR [Concomitant]
  5. PROTONIX [Concomitant]
  6. VFEND [Concomitant]
  7. PROVERA [Concomitant]
  8. PROCRIT [Concomitant]
  9. ALLEGRA-D (PSEUDOEPHEDRINE HYDROCHLORIDE) [Concomitant]
  10. PENTAMIDINE (PENTAMIDINE) [Concomitant]
  11. IMODIUM [Concomitant]
  12. XANAX [Concomitant]
  13. AMBIEN [Concomitant]
  14. LEVAQUIN [Concomitant]
  15. CARDIZEM [Concomitant]
  16. BICITRA (SODIUM CITRATE, CITRIC ACID) [Concomitant]
  17. COMPAZINE [Concomitant]
  18. FIBERCON (POLYCHLORPERAZINE CALCIUM) [Concomitant]
  19. MEGACE [Concomitant]
  20. POTASSIUM (POTASSIUM CHLORIDE) [Concomitant]
  21. NEUPOGEN [Concomitant]
  22. LUDOCAINE (LIDOCAINE) [Concomitant]
  23. MULTIVITAMIN [Concomitant]
  24. NOVOLOG [Concomitant]
  25. MYLANTA [Concomitant]

REACTIONS (31)
  - ABSCESS LIMB [None]
  - ACUTE MYELOID LEUKAEMIA [None]
  - ACUTE MYELOID LEUKAEMIA RECURRENT [None]
  - ANOREXIA [None]
  - ATRIAL FIBRILLATION [None]
  - ATRIAL FLUTTER [None]
  - BLOOD POTASSIUM DECREASED [None]
  - CATHETER SITE ERYTHEMA [None]
  - CELLULITIS [None]
  - CHLOROMA [None]
  - CONFUSIONAL STATE [None]
  - CYTOMEGALOVIRUS INFECTION [None]
  - DECUBITUS ULCER [None]
  - GENERALISED OEDEMA [None]
  - GRAFT VERSUS HOST DISEASE [None]
  - HYPOTHERMIA [None]
  - HYPOXIA [None]
  - LETHARGY [None]
  - MALIGNANT NEOPLASM PROGRESSION [None]
  - METABOLIC ACIDOSIS [None]
  - MYOPATHY STEROID [None]
  - NAUSEA [None]
  - ORAL HERPES [None]
  - PLATELET COUNT DECREASED [None]
  - RENAL FAILURE [None]
  - SINUSITIS [None]
  - SOMNOLENCE [None]
  - STAPHYLOCOCCAL SEPSIS [None]
  - TACHYCARDIA [None]
  - TOOTH ABSCESS [None]
  - VOMITING [None]
